FAERS Safety Report 7475787-4 (Version None)
Quarter: 2011Q2

REPORT INFORMATION
  Report Type: 
  Country: None (occurrence: None)
  Receive Date: 20110510
  Receipt Date: 20110510
  Transmission Date: 20111010
  Serious: Yes (Hospitalization)
  Sender: FDA-Public Use
  Company Number: None

PATIENT
  Age: 70 Year
  Sex: Female

DRUGS (7)
  1. GABAPENTIN [Suspect]
     Indication: PAIN
     Dosage: 600 MG TID PO
     Route: 048
  2. DILTIAZIEM [Concomitant]
  3. LISINOPRIL [Concomitant]
  4. VICODIN [Concomitant]
  5. TCH [Concomitant]
  6. LIPITOR [Concomitant]
  7. LASIX [Concomitant]

REACTIONS (3)
  - PANCREATITIS [None]
  - ABDOMINAL PAIN [None]
  - NAUSEA [None]
